FAERS Safety Report 6131141-9 (Version None)
Quarter: 2009Q1

REPORT INFORMATION
  Report Type: 
  Country: None (occurrence: None)
  Receive Date: 20090325
  Receipt Date: 20090313
  Transmission Date: 20090719
  Serious: Yes (Other)
  Sender: FDA-Public Use
  Company Number: JP-PFIZER INC-2009184259

PATIENT

DRUGS (2)
  1. NORVASC [Suspect]
     Dosage: UNK
     Route: 048
  2. INSULIN [Concomitant]

REACTIONS (2)
  - BLOOD CREATINE PHOSPHOKINASE INCREASED [None]
  - HYPERGLYCAEMIA [None]
